FAERS Safety Report 19414342 (Version 1)
Quarter: 2021Q2

REPORT INFORMATION
  Report Type: Spontaneous
  Country: GB (occurrence: GB)
  Receive Date: 20210615
  Receipt Date: 20210615
  Transmission Date: 20210717
  Serious: Yes (Other)
  Sender: FDA-Public Use
  Company Number: GB-NOVOPROD-819241

PATIENT
  Age: 62 Year
  Sex: Female
  Weight: 100 kg

DRUGS (24)
  1. CETIRIZINE [Concomitant]
     Active Substance: CETIRIZINE HYDROCHLORIDE
     Indication: HYPERSENSITIVITY
     Dosage: UNK
     Route: 065
     Dates: start: 20191022
  2. OMEPRAZOLE. [Concomitant]
     Active Substance: OMEPRAZOLE
     Dosage: EACH MORNING AND EVENING ? ACID.
     Dates: start: 20191022
  3. SALBUTAMOL [Concomitant]
     Active Substance: ALBUTEROL
     Dosage: INHALE 1 DOSE 3?4 TIMES/DAY ONLY FOR ACUTE EXAC.
     Route: 055
     Dates: start: 20180209, end: 20210330
  4. ABASAGLAR [Concomitant]
     Active Substance: INSULIN GLARGINE
     Dosage: USE AS DIRECTED
     Route: 065
     Dates: start: 20191022
  5. ANUSOL NOS [Concomitant]
     Active Substance: BALSAM PERU\BENZYL BENZOATE\BISMUTH HYDROXIDE\BISMUTH SUBGALLATE\HYDROCORTISONE ACETATE\ZINC OXIDE
     Dosage: APPLY MORNING AND NIGHT AND AFTER BOW.
     Dates: start: 20201221
  6. CIPROFLOXACIN. [Concomitant]
     Active Substance: CIPROFLOXACIN
     Dosage: FOR 7 DAYS
     Route: 065
     Dates: start: 20201221
  7. COSMOCOL [Concomitant]
     Dosage: ONE SACHET UP TO TWICE A DAY
     Route: 065
     Dates: start: 20210517, end: 20210601
  8. NYSTAN [Concomitant]
     Active Substance: NYSTATIN
     Dosage: DROP INTO MOUTH FOR 7 DAYS.
     Route: 065
     Dates: start: 20191220
  9. OTOMIZE [Concomitant]
     Dosage: UNK
     Route: 065
     Dates: start: 20210511, end: 20210525
  10. SECURON [Concomitant]
     Active Substance: VERAPAMIL HYDROCHLORIDE
     Dosage: UNK
     Route: 065
     Dates: start: 20191022
  11. FERROUS FUMARATE [Concomitant]
     Active Substance: FERROUS FUMARATE
     Dosage: 1 TAB
     Route: 065
     Dates: start: 20210317, end: 20210414
  12. RIVAROXABAN [Concomitant]
     Active Substance: RIVAROXABAN
     Dosage: TO PREVENT STROKES IN AFTER
     Route: 065
     Dates: start: 20191022
  13. TRESIBA [Suspect]
     Active Substance: INSULIN DEGLUDEC
     Indication: PRODUCT USED FOR UNKNOWN INDICATION
     Dosage: 100UNITS/ML 3ML PRE?FILLED PENS
     Route: 065
     Dates: start: 20210426
  14. CLENIL MODULITE [Concomitant]
     Active Substance: BECLOMETHASONE DIPROPIONATE
     Dosage: RINSE MOUTH AFTER USE
     Route: 055
     Dates: start: 20191111
  15. CLOTRIMAZOLE. [Concomitant]
     Active Substance: CLOTRIMAZOLE
     Dosage: USE AS DIRECTED FOR FLARE UPS
     Route: 065
     Dates: start: 20191220
  16. EPIPEN [Concomitant]
     Active Substance: EPINEPHRINE
     Indication: HYPERSENSITIVITY
     Dosage: SEVERE ACUTE ALLERGY
     Route: 065
     Dates: start: 20200506
  17. SUKKARTO [Concomitant]
     Active Substance: METFORMIN HYDROCHLORIDE
     Dosage: TWO TO BE TAKEN EACH MORNING AND TWO EACH EVENING
     Route: 065
     Dates: start: 20191022, end: 20210528
  18. LOSARTAN. [Concomitant]
     Active Substance: LOSARTAN
     Dosage: 1 TAB
     Route: 065
     Dates: start: 20191022
  19. ZEROBASE [Concomitant]
     Active Substance: MINERAL OIL\PARAFFIN
     Indication: LICHEN SCLEROSUS
     Dosage: USE AS DIRECTED
     Dates: start: 20190510
  20. ATORVASTATIN [Concomitant]
     Active Substance: ATORVASTATIN
     Dosage: UNK
     Route: 065
     Dates: start: 20191022
  21. SALAMOL [Concomitant]
     Active Substance: ALBUTEROL
     Indication: ASTHMA
     Dosage: 2 TAB
     Route: 055
     Dates: start: 20190503
  22. VAGIFEM [Concomitant]
     Active Substance: ESTRADIOL
     Dosage: OESTROGEN DEFICI.
     Route: 065
     Dates: start: 20200506
  23. DERMOVATE [Concomitant]
     Active Substance: CLOBETASOL
     Dosage: AS DIRECTED ? USE ONCE OR TWICE WEEKLY FOR LICH.
     Route: 065
     Dates: start: 20201208
  24. HIBISCRUB [Concomitant]
     Active Substance: CHLORHEXIDINE GLUCONATE
     Dosage: USE AS DIRECTED
     Route: 065
     Dates: start: 20181115

REACTIONS (2)
  - Flushing [Recovered/Resolved]
  - Malaise [Recovered/Resolved]

NARRATIVE: CASE EVENT DATE: 20210526
